FAERS Safety Report 19729045 (Version 1)
Quarter: 2021Q3

REPORT INFORMATION
  Report Type: Spontaneous
  Country: PT (occurrence: PT)
  Receive Date: 20210820
  Receipt Date: 20210820
  Transmission Date: 20211014
  Serious: Yes (Life-Threatening)
  Sender: FDA-Public Use
  Company Number: PT-TEVA-2021-PT-1943158

PATIENT
  Age: 5 Year
  Sex: Female

DRUGS (3)
  1. CYTARABINE. [Concomitant]
     Active Substance: CYTARABINE
  2. METOTREXATO [METHOTREXATE] [Suspect]
     Active Substance: METHOTREXATE
     Dosage: 12 MG , ADDITIONAL INFO : IT ADMINISTRATION
     Route: 037
     Dates: start: 20210426
  3. HYDROCORTISONE. [Concomitant]
     Active Substance: HYDROCORTISONE
     Route: 037

REACTIONS (4)
  - Hemiparesis [Recovered/Resolved]
  - Transient ischaemic attack [Recovered/Resolved]
  - Facial asymmetry [Recovered/Resolved]
  - Motor dysfunction [Recovered/Resolved]

NARRATIVE: CASE EVENT DATE: 20210503
